FAERS Safety Report 5303755-7 (Version None)
Quarter: 2007Q2

REPORT INFORMATION
  Report Type: 
  Country: None (occurrence: None)
  Receive Date: 20070420
  Receipt Date: 20070410
  Transmission Date: 20071010
  Serious: Yes (Hospitalization, Other)
  Sender: FDA-Public Use
  Company Number: BR-PFIZER INC-2006034314

PATIENT
  Sex: Female

DRUGS (3)
  1. DOSTINEX [Suspect]
     Indication: BLOOD PROLACTIN INCREASED
     Route: 048
     Dates: start: 20060101, end: 20061101
  2. DOSTINEX [Suspect]
     Indication: HYPERPROLACTINAEMIA
  3. SEROPHENE [Concomitant]
     Route: 048

REACTIONS (8)
  - AMENORRHOEA [None]
  - BLOOD FOLLICLE STIMULATING HORMONE DECREASED [None]
  - BLOOD LUTEINISING HORMONE DECREASED [None]
  - BLOOD PROLACTIN INCREASED [None]
  - ECTOPIC PREGNANCY [None]
  - HAEMORRHAGE [None]
  - MENSTRUATION DELAYED [None]
  - PROGESTERONE DECREASED [None]
